FAERS Safety Report 16934801 (Version 1)
Quarter: 2019Q4

REPORT INFORMATION
  Report Type: Spontaneous
  Country: US (occurrence: US)
  Receive Date: 20190827
  Receipt Date: 20190827
  Transmission Date: 20200122
  Serious: Yes (Hospitalization)
  Sender: FDA-Public Use
  Company Number: None

PATIENT
  Age: 60 Year
  Sex: Male

DRUGS (5)
  1. TEMOZOLOMIDE 140MG [Suspect]
     Active Substance: TEMOZOLOMIDE
  2. LEV??? [Concomitant]
  3. ONDANSETRONTAB 8 MG [Concomitant]
  4. TEMOZOLOMIDE 140MG [Suspect]
     Active Substance: TEMOZOLOMIDE
     Indication: SMALL INTESTINE CARCINOMA
     Route: 048
     Dates: start: 20190729
  5. PROCHIORPER TAB 10MG [Concomitant]

REACTIONS (1)
  - Nausea [None]

NARRATIVE: CASE EVENT DATE: 20190823
